FAERS Safety Report 22604772 (Version 1)
Quarter: 2023Q2

REPORT INFORMATION
  Report Type: Spontaneous
  Country: US (occurrence: None)
  Receive Date: 20230614
  Receipt Date: 20230614
  Transmission Date: 20230721
  Serious: Yes (Hospitalization, Other)
  Sender: FDA-Public Use
  Company Number: None

PATIENT
  Age: 69 Year
  Sex: Female
  Weight: 71.5 kg

DRUGS (1)
  1. BREYANZI [Suspect]
     Active Substance: LISOCABTAGENE MARALEUCEL

REACTIONS (4)
  - Lymphocyte adoptive therapy [None]
  - Cytokine release syndrome [None]
  - Neurotoxicity [None]
  - Septic shock [None]

NARRATIVE: CASE EVENT DATE: 20221219
